FAERS Safety Report 10276801 (Version 1)
Quarter: 2014Q3

REPORT INFORMATION
  Report Type: Spontaneous
  Country: JP (occurrence: JP)
  Receive Date: 20140703
  Receipt Date: 20140703
  Transmission Date: 20150326
  Serious: Yes (Other)
  Sender: FDA-Public Use
  Company Number: JP-JNJFOC-20140701427

PATIENT

DRUGS (1)
  1. INFLIXIMAB, RECOMBINANT [Suspect]
     Active Substance: INFLIXIMAB
     Indication: CROHN^S DISEASE
     Dosage: 5 MG/KG AT 0, 2, 6 WEEKS AS INDUCTION??THERAPY AND 5 MG/KG EVERY 8 WEEKS AS MAINTAINED THERAPY
     Route: 042

REACTIONS (1)
  - Ileus [Unknown]
